FAERS Safety Report 8815457 (Version 2)
Quarter: 2012Q4

REPORT INFORMATION
  Report Type: 
  Country: US (occurrence: US)
  Receive Date: 20120928
  Receipt Date: 20121120
  Transmission Date: 20130627
  Serious: Yes (Other)
  Sender: FDA-Public Use
  Company Number: US-BAYER-2012-100137

PATIENT
  Age: 20 Year
  Sex: Female
  Weight: 74.38 kg

DRUGS (4)
  1. MIRENA [Suspect]
     Indication: CONTRACEPTION
     Dosage: 20 ?g/d, UNK
     Route: 015
     Dates: start: 20120907
  2. CYTOTEC [Concomitant]
     Dosage: 100 ?g, QD
     Route: 048
     Dates: start: 20120906
  3. CYTOTEC [Concomitant]
     Dosage: 100 ?g, QD
     Route: 048
     Dates: start: 20120907
  4. LIDOCAIN [Concomitant]
     Dosage: UNK
     Dates: start: 20120907

REACTIONS (3)
  - Device dislocation [None]
  - Pain [None]
  - Device difficult to use [None]
